FAERS Safety Report 9856777 (Version 1)
Quarter: 2014Q1

REPORT INFORMATION
  Report Type: Spontaneous
  Country: US (occurrence: US)
  Receive Date: 20140130
  Receipt Date: 20140130
  Transmission Date: 20141002
  Serious: No
  Sender: FDA-Public Use
  Company Number: US-PFIZER INC-2014028834

PATIENT
  Age: 58 Year
  Sex: Female
  Weight: 56.69 kg

DRUGS (1)
  1. SERTRALINE HCL [Suspect]
     Indication: MENOPAUSAL SYMPTOMS
     Dosage: 25 MG, DAILY
     Dates: start: 201304, end: 201305

REACTIONS (2)
  - Drug ineffective for unapproved indication [Unknown]
  - Off label use [Unknown]
